FAERS Safety Report 9051138 (Version 1)
Quarter: 2013Q1

REPORT INFORMATION
  Report Type: Spontaneous
  Country: US (occurrence: US)
  Receive Date: 20130206
  Receipt Date: 20130206
  Transmission Date: 20140127
  Serious: No
  Sender: FDA-Public Use
  Company Number: US-PFIZER INC-2013048420

PATIENT
  Sex: Male

DRUGS (2)
  1. LIPITOR [Suspect]
     Dosage: UNK
  2. RANEXA [Suspect]
     Dosage: UNK, 2X/DAY
     Route: 048
     Dates: start: 201106

REACTIONS (1)
  - Dry mouth [Unknown]
